FAERS Safety Report 25871673 (Version 1)
Quarter: 2025Q4

REPORT INFORMATION
  Report Type: Spontaneous
  Country: US (occurrence: US)
  Receive Date: 20251001
  Receipt Date: 20251001
  Transmission Date: 20260118
  Serious: Yes (Hospitalization, Other)
  Sender: AMGEN
  Company Number: US-AMGEN-USASP2025190914

PATIENT
  Age: 48 Year
  Sex: Male

DRUGS (1)
  1. XGEVA [Suspect]
     Active Substance: DENOSUMAB
     Indication: Colorectal cancer metastatic
     Dosage: UNK
     Route: 065
     Dates: start: 202010, end: 202104

REACTIONS (8)
  - Necrosis [Unknown]
  - Bone lesion [Unknown]
  - General physical health deterioration [Recovered/Resolved]
  - Resorption bone increased [Unknown]
  - Arthralgia [Recovered/Resolved]
  - Carcinoembryonic antigen increased [Recovering/Resolving]
  - Metastases to adrenals [Unknown]
  - Metastases to liver [Unknown]

NARRATIVE: CASE EVENT DATE: 20230601
